FAERS Safety Report 5262579-X (Version None)
Quarter: 2007Q1

REPORT INFORMATION
  Report Type: 
  Country: None (occurrence: None)
  Receive Date: 20070312
  Receipt Date: 20070227
  Transmission Date: 20070707
  Serious: Yes (Other)
  Sender: FDA-Public Use
  Company Number: PHBS2007KR03635

PATIENT

DRUGS (1)
  1. CLOZARIL [Suspect]

REACTIONS (2)
  - HAEMOPHILIA [None]
  - HAEMORRHOIDS [None]
